FAERS Safety Report 5951164-X (Version None)
Quarter: 2008Q4

REPORT INFORMATION
  Report Type: 
  Country: None (occurrence: None)
  Receive Date: 20081112
  Receipt Date: 20081112
  Transmission Date: 20090506
  Serious: Yes (Other)
  Sender: FDA-Public Use
  Company Number: None

PATIENT
  Age: 54 Year
  Sex: Female
  Weight: 108.8633 kg

DRUGS (1)
  1. HUMIRA [Suspect]
     Indication: ARTHRITIS
     Dosage: 1 PEN EVERY OTHER WEEK 1 EVERY 14 DAYS SQ
     Route: 058
     Dates: start: 20080514, end: 20080715

REACTIONS (4)
  - ABASIA [None]
  - PAIN [None]
  - PSORIASIS [None]
  - RASH [None]
